FAERS Safety Report 16378468 (Version 1)
Quarter: 2019Q2

REPORT INFORMATION
  Report Type: Spontaneous
  Country: US (occurrence: US)
  Receive Date: 20190410
  Receipt Date: 20190410
  Transmission Date: 20190711
  Serious: Yes (Other)
  Sender: FDA-Public Use
  Company Number: None

PATIENT
  Age: 87 Year
  Sex: Female
  Weight: 59.4 kg

DRUGS (9)
  1. IBRANCE [Suspect]
     Active Substance: PALBOCICLIB
     Indication: BREAST CANCER
     Route: 048
     Dates: start: 20171221
  2. ASPIRIN. [Concomitant]
     Active Substance: ASPIRIN
  3. EXEMESTANE. [Concomitant]
     Active Substance: EXEMESTANE
  4. CITALOPRAM [Concomitant]
     Active Substance: CITALOPRAM HYDROBROMIDE
  5. LOSARTAN. [Concomitant]
     Active Substance: LOSARTAN
  6. BENZTROPINE. [Concomitant]
     Active Substance: BENZTROPINE
  7. VITAMIN D [Concomitant]
     Active Substance: VITAMIN D NOS
  8. PANTOPRAZOLE [Concomitant]
     Active Substance: PANTOPRAZOLE
  9. CYCLOBENZEPRINE [Concomitant]

REACTIONS (1)
  - Rash [None]
